FAERS Safety Report 13195273 (Version 1)
Quarter: 2017Q1

REPORT INFORMATION
  Report Type: Spontaneous
  Country: US (occurrence: US)
  Receive Date: 20170208
  Receipt Date: 20170208
  Transmission Date: 20170428
  Serious: Yes (Other)
  Sender: FDA-Public Use
  Company Number: US-CIPLA LTD.-2017US01531

PATIENT

DRUGS (10)
  1. VIAGRA [Suspect]
     Active Substance: SILDENAFIL CITRATE
     Dosage: 100 MG, UNK
     Route: 048
     Dates: start: 201612
  2. VIAGRA [Suspect]
     Active Substance: SILDENAFIL CITRATE
     Dosage: UNK, TOOK THE SAMPLES FOR A FEW DAYS
     Route: 048
     Dates: start: 201701
  3. FOLIC ACID. [Suspect]
     Active Substance: FOLIC ACID
     Dosage: UNK
     Route: 065
     Dates: start: 2015, end: 2016
  4. CARVEDILOL. [Suspect]
     Active Substance: CARVEDILOL
     Indication: HYPERTENSION
     Dosage: UNK
     Route: 065
  5. PRAVASTATIN. [Concomitant]
     Active Substance: PRAVASTATIN
     Indication: BLOOD CHOLESTEROL INCREASED
     Dosage: 40 MG, QD, TABLET BY MOUTH ONCE A DAY
     Route: 048
     Dates: start: 2015
  6. VIAGRA [Suspect]
     Active Substance: SILDENAFIL CITRATE
     Dosage: 50 MG, QOD
     Route: 048
  7. HYDROCODONE [Concomitant]
     Active Substance: HYDROCODONE
     Indication: HEADACHE
  8. AMLODIPINE [Suspect]
     Active Substance: AMLODIPINE BESYLATE
     Indication: HYPERTENSION
     Dosage: 5 MG, ONE TABLET
     Route: 048
     Dates: start: 2015
  9. VIAGRA [Suspect]
     Active Substance: SILDENAFIL CITRATE
     Indication: ANGINA PECTORIS
     Dosage: 100 MG, EVERY THREE TO FOUR DAYS
     Route: 048
  10. HYDROCODONE [Concomitant]
     Active Substance: HYDROCODONE
     Indication: SPINAL COLUMN STENOSIS
     Dosage: BID, 5-325 MG ONE TABLET BY MOUTH TWICE A DAY AS NEEDED FOR PAIN
     Route: 048
     Dates: start: 2015

REACTIONS (5)
  - Hypotension [Recovered/Resolved]
  - Drug ineffective [Unknown]
  - Rash macular [Unknown]
  - Overdose [Unknown]
  - Angina pectoris [Not Recovered/Not Resolved]

NARRATIVE: CASE EVENT DATE: 2016
